FAERS Safety Report 8211438-9 (Version None)
Quarter: 2012Q1

REPORT INFORMATION
  Report Type: 
  Country: None (occurrence: None)
  Receive Date: 20120228
  Receipt Date: 20111011
  Transmission Date: 20120608
  Serious: Yes (Hospitalization, Other)
  Sender: FDA-Public Use
  Company Number: RB-32802-2011

PATIENT
  Sex: Male
  Weight: 3.3113 kg

DRUGS (2)
  1. SUBUTEX [Suspect]
     Indication: DRUG DEPENDENCE
     Dosage: 8 MG, TID, TRANSPLACENTAL (WAS TAPERED TO 4 MG DAILY AT TIME OF DELIVERY)
     Route: 064
     Dates: start: 20110401, end: 20110101
  2. SUBUTEX [Suspect]
     Indication: DRUG DEPENDENCE
     Dosage: 8 MG, TID, TRANSPLACENTAL (WAS TAPERED TO 4 MG DAILY AT TIME OF DELIVERY)
     Route: 064
     Dates: start: 20110101, end: 20111008

REACTIONS (1)
  - DRUG WITHDRAWAL SYNDROME NEONATAL [None]
